FAERS Safety Report 6919079-8 (Version None)
Quarter: 2010Q3

REPORT INFORMATION
  Report Type: 
  Country: None (occurrence: None)
  Receive Date: 20100811
  Receipt Date: 20100803
  Transmission Date: 20110219
  Serious: Yes (Hospitalization)
  Sender: FDA-Public Use
  Company Number: PHHO2010DE12077

PATIENT
  Sex: Male
  Weight: 85.5 kg

DRUGS (4)
  1. SANDIMMUNE [Suspect]
     Indication: RENAL TRANSPLANT
     Dosage: 400 MG, BID
     Route: 048
  2. MYFORTIC [Suspect]
     Indication: RENAL TRANSPLANT
     Dosage: 720 MG, BID
     Route: 048
  3. CERTICAN [Suspect]
  4. URBASON [Suspect]
     Indication: RENAL TRANSPLANT
     Dosage: 250 MG, QD

REACTIONS (1)
  - COMPLICATIONS OF TRANSPLANTED KIDNEY [None]
